FAERS Safety Report 6241117-9 (Version None)
Quarter: 2009Q2

REPORT INFORMATION
  Report Type: 
  Country: None (occurrence: None)
  Receive Date: 20090619
  Receipt Date: 20090609
  Transmission Date: 20091009
  Serious: Yes (Hospitalization, Other)
  Sender: FDA-Public Use
  Company Number: 2009AP002012

PATIENT
  Age: 41 Year

DRUGS (16)
  1. PREDNISOLONE [Suspect]
     Indication: IMMUNOSUPPRESSION
     Dosage: 20 MG; QD 5 MG;QD
  2. MYCOPHENOLATE MOFETIL [Suspect]
     Indication: IMMUNOSUPPRESSION
     Dosage: 1 GM;QD
  3. TACROLIMUS [Suspect]
     Indication: IMMUNOSUPPRESSION
     Dosage: TOP
  4. ANTI-THYMOCYTE GLOBULIN NOS [Suspect]
     Indication: IMMUNOSUPPRESSION
     Dosage: 1.5 MG/KG
  5. METHYLPREDNISOLONE [Suspect]
     Indication: IMMUNOSUPPRESSION
     Dosage: 500 MG
  6. ALEMTUZUMAB [Suspect]
     Indication: IMMUNOSUPPRESSION
  7. EVEROLIMUS [Suspect]
  8. CIDOFOVIR [Suspect]
     Indication: CYTOMEGALOVIRUS INFECTION
  9. IMMUNOGLOBULIN CYTOMEGALOVIRUS [Concomitant]
  10. GANCICLOVIR [Concomitant]
  11. PIPERACILLIN [Concomitant]
  12. TAZOBACTAM [Concomitant]
  13. FLUCONAZOLE [Interacting]
  14. VALGANCICLOVIR HCL [Concomitant]
  15. SULFAMETHOXAZOLE AND TRIMETHOPRIM [Concomitant]
  16. TRIMETHOPRIM [Concomitant]

REACTIONS (17)
  - ALTERNARIA INFECTION [None]
  - CLOSTRIDIUM DIFFICILE COLITIS [None]
  - CYTOMEGALOVIRUS INFECTION [None]
  - DRUG INTERACTION [None]
  - GRAFT INFECTION [None]
  - HEADACHE [None]
  - HYPERTENSION [None]
  - IMMUNOSUPPRESSANT DRUG LEVEL INCREASED [None]
  - METABOLIC DISORDER [None]
  - NEPHROPATHY TOXIC [None]
  - NOSOCOMIAL INFECTION [None]
  - PAPILLOMA VIRAL INFECTION [None]
  - RENAL IMPAIRMENT [None]
  - SKIN PAPILLOMA [None]
  - SOFT TISSUE INFECTION [None]
  - TRANSPLANT REJECTION [None]
  - VIRAL INFECTION [None]
